FAERS Safety Report 6379148-0 (Version None)
Quarter: 2009Q3

REPORT INFORMATION
  Report Type: 
  Country: None (occurrence: None)
  Receive Date: 20090928
  Receipt Date: 20090918
  Transmission Date: 20100115
  Serious: Yes (Hospitalization, Other)
  Sender: FDA-Public Use
  Company Number: AR-ALEXION-A200900583

PATIENT

DRUGS (3)
  1. SOLIRIS [Suspect]
     Indication: PAROXYSMAL NOCTURNAL HAEMOGLOBINURIA
     Dosage: 600 MG, QW
     Route: 042
     Dates: start: 20090623
  2. PIPERACILLIN SODIUM W/TAZOBACTAM [Suspect]
     Dosage: UNK
     Dates: start: 20090626
  3. CORTICOSTEROID NOS [Concomitant]

REACTIONS (8)
  - DIARRHOEA [None]
  - FEBRILE NEUTROPENIA [None]
  - HYPOTENSION [None]
  - LEUKOPENIA [None]
  - NEUTROPENIA [None]
  - PNEUMONIA [None]
  - RASH [None]
  - VIRAL INFECTION [None]
